FAERS Safety Report 11234091 (Version 1)
Quarter: 2015Q3

REPORT INFORMATION
  Report Type: Spontaneous
  Country: IT (occurrence: IT)
  Receive Date: 20150702
  Receipt Date: 20150702
  Transmission Date: 20151125
  Serious: Yes (Other)
  Sender: FDA-Public Use
  Company Number: IT-TEVA-574275ACC

PATIENT
  Age: 77 Year
  Sex: Female

DRUGS (8)
  1. TENORMIN - ASTRAZENECA S.P.A. [Concomitant]
     Indication: HYPERTENSION
     Dosage: 50 MG
     Route: 048
  2. NEXAVAR [Suspect]
     Active Substance: SORAFENIB
     Indication: HEPATIC CANCER METASTATIC
     Dosage: 800 MILLIGRAM DAILY; 800 MG DAILY
     Route: 048
     Dates: start: 20150415, end: 20150515
  3. LETROZOLO TEVA - TEVA ITALIA S.R.L. [Suspect]
     Active Substance: LETROZOLE
     Indication: BREAST CANCER
     Dosage: 2.5 MILLIGRAM DAILY; 2.5 MG DAILY
     Route: 048
     Dates: start: 20150415, end: 20150515
  4. METHOTREXATE - PFIZER ITALIA S.R.L. [Suspect]
     Active Substance: METHOTREXATE
     Indication: BREAST CANCER
     Dosage: 2.5 MG WEEKLY
     Route: 048
     Dates: start: 20150415, end: 20150515
  5. HUMALOG [Concomitant]
     Active Substance: INSULIN LISPRO
     Indication: DIABETES MELLITUS
     Dosage: 34 LU
     Route: 058
  6. LANTUS - SANOFI - AVENTIS DEUTSCHLAND GMBH [Concomitant]
     Indication: DIABETES MELLITUS
     Dosage: 24 LU
     Route: 058
  7. FOSICOMBI - A. MENARINI INDUSTRIE FARMACEUTICHE RIUNITE S.R.L. [Concomitant]
     Indication: HYPERTENSION
     Dosage: 1 DF
     Route: 048
  8. ANTRA - ASTRAZENECA S.P.A. [Concomitant]
     Indication: CHRONIC GASTRITIS
     Dosage: 20 MG
     Route: 048

REACTIONS (3)
  - Blood alkaline phosphatase increased [Recovering/Resolving]
  - Hyperbilirubinaemia [Recovering/Resolving]
  - Hypertransaminasaemia [Recovering/Resolving]

NARRATIVE: CASE EVENT DATE: 20150513
